FAERS Safety Report 6974373-X (Version None)
Quarter: 2010Q3

REPORT INFORMATION
  Report Type: 
  Country: None (occurrence: None)
  Receive Date: 20100909
  Receipt Date: 20100906
  Transmission Date: 20110219
  Serious: Yes (Death, Hospitalization)
  Sender: FDA-Public Use
  Company Number: PHHY2010DE20192

PATIENT
  Age: 17 Year
  Sex: Female
  Weight: 94 kg

DRUGS (3)
  1. ZOMETA [Suspect]
     Indication: OSTEOPOROSIS
     Dosage: 4.7 MG,(DURATION OF INFUSION: 30 MINUTES)
     Dates: start: 20100318
  2. MINIRIN [Concomitant]
  3. CORTISONE ACETATE [Concomitant]

REACTIONS (10)
  - ANURIA [None]
  - C-REACTIVE PROTEIN INCREASED [None]
  - DYSPNOEA [None]
  - HYPERKALAEMIA [None]
  - INFLUENZA LIKE ILLNESS [None]
  - LEUKOCYTOSIS [None]
  - PAIN [None]
  - PYREXIA [None]
  - RENAL FAILURE ACUTE [None]
  - UROSEPSIS [None]
